FAERS Safety Report 6541724-X (Version None)
Quarter: 2010Q1

REPORT INFORMATION
  Report Type: 
  Country: None (occurrence: None)
  Receive Date: 20100119
  Receipt Date: 20100106
  Transmission Date: 20100710
  Serious: Yes (Other)
  Sender: FDA-Public Use
  Company Number: US-AMGEN-KDL383941

PATIENT
  Sex: Male
  Weight: 81.7 kg

DRUGS (2)
  1. PROCRIT [Suspect]
     Indication: RENAL FAILURE CHRONIC
     Dates: start: 20060101
  2. IRON [Concomitant]

REACTIONS (4)
  - MYELODYSPLASTIC SYNDROME [None]
  - REFRACTORY ANAEMIA WITH RINGED SIDEROBLASTS [None]
  - SERUM FERRITIN INCREASED [None]
  - THERAPEUTIC RESPONSE DECREASED [None]
